FAERS Safety Report 6036772-2 (Version None)
Quarter: 2009Q1

REPORT INFORMATION
  Report Type: 
  Country: None (occurrence: None)
  Receive Date: 20090114
  Receipt Date: 20090109
  Transmission Date: 20090719
  Serious: Yes (Other)
  Sender: FDA-Public Use
  Company Number: US-JNJFOC-20090102211

PATIENT
  Age: 58 Year
  Sex: Male
  Weight: 83.92 kg

DRUGS (3)
  1. RISPERIDONE [Suspect]
     Indication: DEPRESSION
     Route: 048
  2. AMBIEN [Concomitant]
     Indication: SLEEP DISORDER
     Route: 048
  3. ZOLOFT [Concomitant]
     Indication: DEPRESSION
     Route: 048

REACTIONS (4)
  - AGITATION [None]
  - MENTAL IMPAIRMENT [None]
  - OFF LABEL USE [None]
  - PARANOIA [None]
